FAERS Safety Report 5385689-5 (Version None)
Quarter: 2007Q3

REPORT INFORMATION
  Report Type: 
  Country: None (occurrence: None)
  Receive Date: 20070712
  Receipt Date: 20070630
  Transmission Date: 20080115
  Serious: Yes (Other)
  Sender: FDA-Public Use
  Company Number: US-PFIZER INC-2007054178

PATIENT
  Sex: Female

DRUGS (3)
  1. NEURONTIN [Suspect]
  2. LYRICA [Suspect]
     Indication: PAIN
  3. LYRICA [Suspect]
     Indication: CONTUSION

REACTIONS (7)
  - ADVERSE EVENT [None]
  - DISORIENTATION [None]
  - DIZZINESS [None]
  - DRUG INEFFECTIVE [None]
  - EYE DISORDER [None]
  - FEELING DRUNK [None]
  - VISUAL DISTURBANCE [None]
